FAERS Safety Report 5058079-2 (Version None)
Quarter: 2006Q3

REPORT INFORMATION
  Report Type: 
  Country: None (occurrence: None)
  Receive Date: 20060721
  Receipt Date: 20060713
  Transmission Date: 20061208
  Serious: Yes (Other)
  Sender: FDA-Public Use
  Company Number: 2006UW14416

PATIENT
  Age: 51 Year
  Sex: Male
  Weight: 113.6 kg

DRUGS (1)
  1. SEROQUEL [Suspect]
     Route: 048
     Dates: start: 20050913

REACTIONS (1)
  - DRUG SCREEN POSITIVE [None]
